FAERS Safety Report 10429359 (Version 3)
Quarter: 2015Q2

REPORT INFORMATION
  Report Type: Spontaneous
  Country: IT (occurrence: IT)
  Receive Date: 20140904
  Receipt Date: 20150521
  Transmission Date: 20150821
  Serious: Yes (Hospitalization)
  Sender: FDA-Public Use
  Company Number: IT-RANBAXY-2014RR-84821

PATIENT
  Age: 53 Year
  Sex: Female

DRUGS (2)
  1. SERTRALINE [Suspect]
     Active Substance: SERTRALINE HYDROCHLORIDE
     Indication: INTENTIONAL SELF-INJURY
     Dosage: 36 DF, TOTAL
     Route: 048
     Dates: start: 20131009, end: 20131010
  2. EN [Suspect]
     Active Substance: DELORAZEPAM
     Indication: INTENTIONAL SELF-INJURY
     Dosage: UNSPECIFIED QUANTITY OF DROPS
     Route: 048
     Dates: start: 20131009, end: 20131010

REACTIONS (3)
  - Intentional self-injury [Recovering/Resolving]
  - Sopor [Recovering/Resolving]
  - Dysarthria [Recovering/Resolving]

NARRATIVE: CASE EVENT DATE: 20131010
